FAERS Safety Report 9548418 (Version 2)
Quarter: 2014Q1

REPORT INFORMATION
  Report Type: Spontaneous
  Country: CN (occurrence: CN)
  Receive Date: 20130924
  Receipt Date: 20140218
  Transmission Date: 20141002
  Serious: Yes (Other)
  Sender: FDA-Public Use
  Company Number: CN-SANOFI-AVENTIS-2013SA091840

PATIENT
  Age: 53 Year
  Sex: Female

DRUGS (2)
  1. COAPROVEL [Suspect]
     Indication: HYPERTENSION
     Route: 048
     Dates: start: 2007
  2. LACIDIPINE [Concomitant]
     Indication: HYPERTENSION
     Route: 048

REACTIONS (3)
  - Retinal detachment [Recovering/Resolving]
  - Vision blurred [Recovering/Resolving]
  - Macular hole [Not Recovered/Not Resolved]
